FAERS Safety Report 8478275-1 (Version None)
Quarter: 2012Q2

REPORT INFORMATION
  Report Type: 
  Country: None (occurrence: None)
  Receive Date: 20120629
  Receipt Date: 20120618
  Transmission Date: 20120825
  Serious: Yes (Other)
  Sender: FDA-Public Use
  Company Number: US-JNJFOC-20110508383

PATIENT
  Sex: Female
  Weight: 68.04 kg

DRUGS (3)
  1. NUCYNTA [Suspect]
     Indication: NECK PAIN
     Dosage: TWICE DAILY
     Route: 048
     Dates: start: 20110501
  2. XANAX [Concomitant]
     Indication: ANXIETY
     Dosage: AS NEEDED
     Route: 048
  3. ADDERALL 5 [Concomitant]
     Indication: ATTENTION DEFICIT/HYPERACTIVITY DISORDER
     Dosage: TWICE DAILY
     Route: 048
     Dates: start: 20100101

REACTIONS (4)
  - DEPRESSION [None]
  - HALLUCINATION [None]
  - INSOMNIA [None]
  - SUICIDAL IDEATION [None]
